FAERS Safety Report 10940221 (Version 2)
Quarter: 2015Q2

REPORT INFORMATION
  Report Type: Spontaneous
  Country: US (occurrence: US)
  Receive Date: 20150322
  Receipt Date: 20150525
  Transmission Date: 20150821
  Serious: No
  Sender: FDA-Public Use
  Company Number: US-JNJFOC-20140106321

PATIENT
  Age: 49 Year
  Sex: Female
  Weight: 81.19 kg

DRUGS (9)
  1. FLEXERIL [Concomitant]
     Active Substance: CYCLOBENZAPRINE HYDROCHLORIDE
     Indication: MUSCLE SPASMS
     Dosage: THRICE A DAY
     Route: 048
  2. LEVOTHYROXINE [Concomitant]
     Active Substance: LEVOTHYROXINE
     Indication: THYROID DISORDER
     Dosage: ONCE A DAY
     Route: 048
  3. NEXIUM [Concomitant]
     Active Substance: ESOMEPRAZOLE MAGNESIUM
     Indication: GASTROOESOPHAGEAL REFLUX DISEASE
     Dosage: ONCE A DAY
     Route: 048
  4. CELEBREX [Concomitant]
     Active Substance: CELECOXIB
     Indication: ARTHRITIS
     Dosage: TWICE A DAY
     Route: 048
  5. AMITRIPTYLIN [Concomitant]
     Active Substance: AMITRIPTYLINE
     Dosage: TWICE A DAY
     Route: 048
  6. BUTIRAN [Concomitant]
     Indication: PAIN
     Dosage: 20MG/CHANGE PATCH WEEKLY
     Route: 062
     Dates: start: 2013
  7. ROZEREM [Concomitant]
     Active Substance: RAMELTEON
     Indication: SLEEP DISORDER
     Dosage: ONCE A DAY AT BEDTIME
     Route: 048
     Dates: start: 2013
  8. LYRICA [Concomitant]
     Active Substance: PREGABALIN
     Indication: FIBROMYALGIA
     Dosage: TWICE A DAY
     Route: 048
  9. NUCYNTA [Suspect]
     Active Substance: TAPENTADOL HYDROCHLORIDE
     Indication: BREAKTHROUGH PAIN
     Dosage: EVERY 4-6 HOURS AS??NEEDED
     Route: 048
     Dates: start: 20130108

REACTIONS (1)
  - Nausea [Not Recovered/Not Resolved]

NARRATIVE: CASE EVENT DATE: 20140108
